FAERS Safety Report 17913268 (Version 5)
Quarter: 2020Q4

REPORT INFORMATION
  Report Type: Spontaneous
  Country: US (occurrence: US)
  Receive Date: 20200618
  Receipt Date: 20201228
  Transmission Date: 20210113
  Serious: No
  Sender: FDA-Public Use
  Company Number: US-DSJP-DSU-2020-116541

PATIENT
  Age: 53 Year
  Sex: Male

DRUGS (3)
  1. TURALIO [Suspect]
     Active Substance: PEXIDARTINIB HYDROCHLORIDE
     Dosage: 400 MG, BID
     Route: 048
  2. TURALIO [Suspect]
     Active Substance: PEXIDARTINIB HYDROCHLORIDE
     Indication: SYNOVITIS
     Dosage: 400 MG, BID
     Route: 048
     Dates: start: 20200604
  3. TURALIO [Suspect]
     Active Substance: PEXIDARTINIB HYDROCHLORIDE
     Dosage: 400 MG, BID
     Route: 048

REACTIONS (4)
  - Hair colour changes [Unknown]
  - Blood pressure increased [Not Recovered/Not Resolved]
  - Product dose omission issue [Recovered/Resolved]
  - Periorbital swelling [Recovered/Resolved]

NARRATIVE: CASE EVENT DATE: 202006
